FAERS Safety Report 4753088-2 (Version None)
Quarter: 2005Q3

REPORT INFORMATION
  Report Type: 
  Country: None (occurrence: None)
  Receive Date: 20050826
  Receipt Date: 20050309
  Transmission Date: 20060218
  Serious: Yes (Hospitalization)
  Sender: FDA-Public Use
  Company Number: US-MERCK-0503USA01745

PATIENT
  Age: 55 Year
  Sex: Female
  Weight: 91 kg

DRUGS (25)
  1. VIOXX [Suspect]
     Indication: INTERVERTEBRAL DISC PROTRUSION
     Route: 048
     Dates: start: 19990101, end: 20040901
  2. NEURONTIN [Concomitant]
     Indication: PAIN
     Route: 065
  3. NEURONTIN [Concomitant]
     Indication: INFLAMMATION
     Route: 065
  4. PENICILLIN VK [Concomitant]
     Indication: INFECTION
     Route: 065
  5. RESTORIL [Concomitant]
     Route: 065
  6. SEROQUEL [Concomitant]
     Route: 065
  7. EFFEXOR XR [Concomitant]
     Route: 065
  8. ABILIFY [Concomitant]
     Route: 065
  9. ASPIRIN [Concomitant]
     Indication: CARDIAC DISORDER
     Route: 065
     Dates: start: 20030101
  10. PLAVIX [Concomitant]
     Indication: CARDIAC DISORDER
     Route: 065
  11. XANAX [Concomitant]
     Route: 065
  12. PRINIVIL [Concomitant]
     Route: 065
  13. IMDUR [Concomitant]
     Route: 065
     Dates: start: 20030101
  14. CATAPRES [Concomitant]
     Indication: HYPERTENSION
     Route: 065
     Dates: start: 20020101
  15. AMBIEN [Concomitant]
     Route: 065
  16. REMERON [Concomitant]
     Route: 065
  17. METFORMIN [Concomitant]
     Route: 065
  18. VICODIN [Concomitant]
     Indication: PAIN
     Route: 065
     Dates: start: 20030101
  19. VICODIN [Concomitant]
     Indication: INFLAMMATION
     Route: 065
     Dates: start: 20030101
  20. ZYPREXA [Concomitant]
     Route: 065
  21. BUSPAR [Concomitant]
     Route: 065
  22. PROZAC [Concomitant]
     Route: 065
  23. AMOXICILLIN [Concomitant]
     Indication: INFECTION
     Route: 065
  24. FLONASE [Concomitant]
     Indication: HYPERSENSITIVITY
     Route: 065
  25. COLESTID [Concomitant]
     Indication: BLOOD CHOLESTEROL INCREASED
     Route: 065
     Dates: start: 20030101

REACTIONS (27)
  - ACUTE MYOCARDIAL INFARCTION [None]
  - ANAEMIA [None]
  - ANGINA PECTORIS [None]
  - ANXIETY [None]
  - AORTIC VALVE SCLEROSIS [None]
  - BRONCHOSPASM [None]
  - CARDIAC FAILURE [None]
  - CARDIAC FAILURE CONGESTIVE [None]
  - CARDIOGENIC SHOCK [None]
  - CORONARY ARTERY ATHEROSCLEROSIS [None]
  - CORONARY ARTERY OCCLUSION [None]
  - DEPRESSION [None]
  - ECZEMA [None]
  - GASTROOESOPHAGEAL REFLUX DISEASE [None]
  - HYPERKALAEMIA [None]
  - HYPERLIPIDAEMIA [None]
  - HYPERTENSION [None]
  - HYPOTENSION [None]
  - HYPOTHYROIDISM [None]
  - INFLUENZA [None]
  - MITRAL VALVE INCOMPETENCE [None]
  - PANIC DISORDER [None]
  - PNEUMONIA [None]
  - REFRACTORY ANAEMIA [None]
  - RENAL FAILURE ACUTE [None]
  - SPINAL OSTEOARTHRITIS [None]
  - TRICUSPID VALVE INCOMPETENCE [None]
